FAERS Safety Report 5517743-9 (Version None)
Quarter: 2007Q4

REPORT INFORMATION
  Report Type: 
  Country: None (occurrence: None)
  Receive Date: 20071113
  Receipt Date: 20071101
  Transmission Date: 20080405
  Serious: Yes (Life-Threatening)
  Sender: FDA-Public Use
  Company Number: 2007110698

PATIENT
  Age: 16 Day
  Sex: Female

DRUGS (1)
  1. INTRALIPID 20% [Suspect]
     Indication: PARENTERAL NUTRITION
     Dosage: INTRAVENOUS (NOT OTHERWISE SPECIFIED)
     Route: 042
     Dates: start: 20070701, end: 20070813

REACTIONS (5)
  - BLOOD DISORDER [None]
  - CENTRAL LINE INFECTION [None]
  - INFUSION SITE EXTRAVASATION [None]
  - NEONATAL DISORDER [None]
  - STAPHYLOCOCCAL INFECTION [None]
